FAERS Safety Report 23616485 (Version 1)
Quarter: 2024Q1

REPORT INFORMATION
  Report Type: Spontaneous
  Country: US (occurrence: None)
  Receive Date: 20240308
  Receipt Date: 20240308
  Transmission Date: 20240410
  Serious: Yes (Hospitalization)
  Sender: FDA-Public Use
  Company Number: None

PATIENT
  Age: 63 Year
  Sex: Male
  Weight: 88.8 kg

DRUGS (1)
  1. PACLITAXEL [Suspect]
     Active Substance: PACLITAXEL
     Indication: Squamous cell carcinoma of the hypopharynx
     Dosage: FREQUENCY : WEEKLY;?
     Route: 042
     Dates: start: 20240226, end: 20240304

REACTIONS (7)
  - Infusion related reaction [None]
  - Flushing [None]
  - Dyspnoea [None]
  - Dyspnoea [None]
  - Abdominal pain [None]
  - Pelvic pain [None]
  - Therapy cessation [None]

NARRATIVE: CASE EVENT DATE: 20240304
